FAERS Safety Report 9314308 (Version 1)
Quarter: 2013Q2

REPORT INFORMATION
  Report Type: Spontaneous
  Country: US (occurrence: None)
  Receive Date: 20130524
  Receipt Date: 20130524
  Transmission Date: 20140414
  Serious: Yes (Life-Threatening, Disabling)
  Sender: FDA-Public Use
  Company Number: None

PATIENT
  Age: 44 Year
  Sex: Male
  Weight: 108.86 kg

DRUGS (1)
  1. ONDANSETRON [Suspect]
     Indication: NAUSEA

REACTIONS (7)
  - Medication error [None]
  - Incorrect route of drug administration [None]
  - Blindness [None]
  - Muscle rigidity [None]
  - Tachycardia [None]
  - Chest pain [None]
  - Visual impairment [None]
